FAERS Safety Report 15484481 (Version 4)
Quarter: 2019Q3

REPORT INFORMATION
  Report Type: Spontaneous
  Country: FR (occurrence: FR)
  Receive Date: 20181010
  Receipt Date: 20190703
  Transmission Date: 20191004
  Serious: Yes (Hospitalization)
  Sender: FDA-Public Use
  Company Number: FR-ANIPHARMA-2018-FR-000152

PATIENT
  Age: 71 Year
  Sex: Male
  Weight: 83 kg

DRUGS (5)
  1. FLUOROURACIL ACCORD [Suspect]
     Active Substance: FLUOROURACIL
     Dosage: 5796 MG TWICE MONTHLY
     Route: 042
     Dates: start: 20130503, end: 20180712
  2. CANDESARTAN CILEXETIL. [Suspect]
     Active Substance: CANDESARTAN CILEXETIL
     Indication: HYPERTENSION
     Dosage: UNK
     Route: 048
     Dates: start: 2016
  3. CAMPTO [Suspect]
     Active Substance: IRINOTECAN
     Dosage: 330 MG TWICE MONTHLY
     Route: 042
     Dates: start: 20180417, end: 20180712
  4. AVASTIN [Suspect]
     Active Substance: BEVACIZUMAB
     Dosage: 469 MG TWICE MONTLY
     Route: 042
     Dates: start: 20150325, end: 20180712
  5. ALLOPURINOL. [Suspect]
     Active Substance: ALLOPURINOL
     Dosage: UNK
     Route: 048
     Dates: start: 2008

REACTIONS (1)
  - Acute cutaneous lupus erythematosus [Recovering/Resolving]

NARRATIVE: CASE EVENT DATE: 201806
